FAERS Safety Report 4352956-3 (Version None)
Quarter: 2004Q2

REPORT INFORMATION
  Report Type: 
  Country: None (occurrence: None)
  Receive Date: 20040429
  Receipt Date: 20040419
  Transmission Date: 20050107
  Serious: Yes (Hospitalization, Other)
  Sender: FDA-Public Use
  Company Number: 2004017808

PATIENT
  Age: 10 Year
  Sex: Male
  Weight: 28.4 kg

DRUGS (2)
  1. VFEND [Suspect]
     Indication: FUNGAL INFECTION
     Dosage: 100 MG (BID), ORAL
     Route: 048
     Dates: start: 20031127, end: 20040331
  2. METHOTREXATE [Suspect]
     Indication: BLOOD DISORDER
     Dosage: 5300 MG (DAILY), INTRAVENOUS
     Route: 042
     Dates: start: 20031229

REACTIONS (4)
  - APLASIA [None]
  - DRUG INTERACTION [None]
  - MUCOSAL INFLAMMATION [None]
  - NEUTROPENIA [None]
